FAERS Safety Report 17988535 (Version 1)
Quarter: 2020Q3

REPORT INFORMATION
  Report Type: Spontaneous
  Country: US (occurrence: US)
  Receive Date: 20200707
  Receipt Date: 20200707
  Transmission Date: 20201103
  Serious: Yes (Hospitalization)
  Sender: FDA-Public Use
  Company Number: US-TEVA-2020-US-1796938

PATIENT
  Age: 45 Year
  Sex: Female

DRUGS (3)
  1. PEMBROLIZUMAB. [Suspect]
     Active Substance: PEMBROLIZUMAB
     Indication: TRIPLE NEGATIVE BREAST CANCER
     Route: 065
  2. CARBOPLATIN. [Suspect]
     Active Substance: CARBOPLATIN
     Indication: TRIPLE NEGATIVE BREAST CANCER
     Route: 065
  3. DOCETAXEL. [Suspect]
     Active Substance: DOCETAXEL
     Indication: TRIPLE NEGATIVE BREAST CANCER
     Route: 065

REACTIONS (10)
  - Osteomyelitis acute [Recovered/Resolved]
  - Angiopathy [Recovered/Resolved]
  - Raynaud^s phenomenon [Recovered/Resolved]
  - Gas gangrene [Recovered/Resolved]
  - Abscess [Recovered/Resolved]
  - Tenosynovitis [Recovered/Resolved]
  - Peptostreptococcus infection [Recovered/Resolved]
  - Bacterial infection [Recovered/Resolved]
  - Onycholysis [Recovered/Resolved]
  - Staphylococcal infection [Recovered/Resolved]
